FAERS Safety Report 8338007-4 (Version None)
Quarter: 2012Q2

REPORT INFORMATION
  Report Type: 
  Country: None (occurrence: None)
  Receive Date: 20120504
  Receipt Date: 20120426
  Transmission Date: 20120825
  Serious: Yes (Hospitalization)
  Sender: FDA-Public Use
  Company Number: US-VERTEX PHARMACEUTICALS INC.-AE-2012-006047

PATIENT
  Sex: Male

DRUGS (3)
  1. INCIVEK [Suspect]
     Indication: HEPATITIS C
     Route: 048
     Dates: start: 20111001, end: 20111201
  2. RIBAVIRIN [Concomitant]
     Indication: HEPATITIS C
     Dates: start: 20111001, end: 20111201
  3. PEGASYS [Concomitant]
     Indication: HEPATITIS C
     Dates: start: 20111001, end: 20111201

REACTIONS (6)
  - ASTHENIA [None]
  - SKIN EXFOLIATION [None]
  - RASH GENERALISED [None]
  - PAIN [None]
  - DECREASED APPETITE [None]
  - WEIGHT DECREASED [None]
